FAERS Safety Report 18119814 (Version 1)
Quarter: 2020Q3

REPORT INFORMATION
  Report Type: Spontaneous
  Country: DE (occurrence: DE)
  Receive Date: 20200806
  Receipt Date: 20200806
  Transmission Date: 20201103
  Serious: Yes (Hospitalization)
  Sender: FDA-Public Use
  Company Number: DE-TEVA-2020-DE-1809550

PATIENT
  Age: 17 Year
  Sex: Female
  Weight: 55 kg

DRUGS (4)
  1. FLUOXETIN 30MG [Suspect]
     Active Substance: FLUOXETINE HYDROCHLORIDE
     Indication: SUICIDAL IDEATION
     Route: 048
     Dates: start: 20200220
  2. FLUOXETIN [Concomitant]
     Active Substance: FLUOXETINE HYDROCHLORIDE
     Indication: DEPRESSION
     Dosage: 30 MILLIGRAM DAILY;
     Route: 048
  3. ZONISAMID 100MG [Suspect]
     Active Substance: ZONISAMIDE
     Indication: SUICIDAL IDEATION
     Route: 048
     Dates: start: 20200220
  4. GUANFACIN 2MG RETARD [Suspect]
     Active Substance: GUANFACINE HYDROCHLORIDE
     Indication: SUICIDAL IDEATION
     Route: 048
     Dates: start: 20200220

REACTIONS (3)
  - Intentional overdose [Recovered/Resolved]
  - Fatigue [Recovered/Resolved]
  - Nausea [Recovered/Resolved]

NARRATIVE: CASE EVENT DATE: 20200220
